FAERS Safety Report 16849407 (Version 1)
Quarter: 2019Q4

REPORT INFORMATION
  Report Type: Spontaneous
  Country: US (occurrence: US)
  Receive Date: 20190924
  Receipt Date: 20190924
  Transmission Date: 20200122
  Serious: Yes (Other)
  Sender: FDA-Public Use
  Company Number: None

PATIENT
  Age: 19 Year
  Sex: Female
  Weight: 63 kg

DRUGS (3)
  1. TRI-SPRINTEC [Concomitant]
     Active Substance: ETHINYL ESTRADIOL\NORGESTIMATE
  2. UP AND UP ALLERGY RELIEF (CETIRIZINE HYDROCHLORIDE) [Suspect]
     Active Substance: CETIRIZINE HYDROCHLORIDE
     Indication: MULTIPLE ALLERGIES
     Dosage: ?          QUANTITY:1 TABLET(S);?
     Route: 048
     Dates: start: 20190918, end: 20190924
  3. WOMEN^S 1 A DAY MULTIVITAMIN [Concomitant]

REACTIONS (12)
  - Pain [None]
  - Mobility decreased [None]
  - Heart rate increased [None]
  - Neck pain [None]
  - Abnormal dreams [None]
  - Feeling abnormal [None]
  - Back pain [None]
  - Somnolence [None]
  - Depression [None]
  - Fatigue [None]
  - Asthenia [None]
  - Feeling of despair [None]

NARRATIVE: CASE EVENT DATE: 20190924
